FAERS Safety Report 25584462 (Version 2)
Quarter: 2025Q3

REPORT INFORMATION
  Report Type: Report from Study
  Country: JP (occurrence: None)
  Receive Date: 20250721
  Receipt Date: 20250807
  Transmission Date: 20251020
  Serious: Yes (Other)
  Sender: ADIENNE PHARMA & BIOTECH
  Company Number: JP-ADIENNEP-2025AD000531

PATIENT

DRUGS (1)
  1. THIOTEPA [Suspect]
     Active Substance: THIOTEPA
     Indication: Autologous haematopoietic stem cell transplant

REACTIONS (2)
  - Blister [Unknown]
  - Erythema [Unknown]
